FAERS Safety Report 9979537 (Version 2)
Quarter: 2014Q1

REPORT INFORMATION
  Report Type: Report from Study
  Country: US (occurrence: US)
  Receive Date: 20140306
  Receipt Date: 20140306
  Transmission Date: 20141002
  Serious: No
  Sender: FDA-Public Use
  Company Number: US-ABBVIE-13P-163-1109578-00

PATIENT
  Age: 59 Year
  Sex: Male

DRUGS (6)
  1. HUMIRA [Suspect]
     Indication: COLITIS ULCERATIVE
     Dates: start: 201301
  2. IMIPRAMINE [Concomitant]
     Indication: COLITIS
     Dosage: 2 TABS AT HS
  3. SULFAZINE [Concomitant]
     Indication: COLITIS
     Dosage: 3 TABS
  4. OMEPRAZOLE [Concomitant]
     Indication: DYSPEPSIA
  5. XANAX [Concomitant]
     Indication: PSYCHOMOTOR HYPERACTIVITY
  6. WELCHOL [Concomitant]
     Indication: DIARRHOEA
     Dosage: AT HS

REACTIONS (5)
  - Frequent bowel movements [Not Recovered/Not Resolved]
  - Colitis ulcerative [Unknown]
  - Abdominal pain upper [Not Recovered/Not Resolved]
  - Abdominal pain upper [Not Recovered/Not Resolved]
  - Drug ineffective [Unknown]
